FAERS Safety Report 8575422-8 (Version None)
Quarter: 2012Q2

REPORT INFORMATION
  Report Type: 
  Country: None (occurrence: None)
  Receive Date: 20120423
  Receipt Date: 20100614
  Transmission Date: 20120825
  Serious: Yes (Other)
  Sender: FDA-Public Use
  Company Number: PHHY2010US39233

PATIENT

DRUGS (1)
  1. EXJADE [Suspect]
     Indication: IRON OVERLOAD

REACTIONS (1)
  - RENAL DISORDER [None]
